FAERS Safety Report 24288193 (Version 2)
Quarter: 2024Q3

REPORT INFORMATION
  Report Type: Spontaneous
  Country: US (occurrence: US)
  Receive Date: 20240905
  Receipt Date: 20240923
  Transmission Date: 20241017
  Serious: Yes (Hospitalization)
  Sender: BIOGEN
  Company Number: US-BIOGEN-2024BI01280090

PATIENT
  Sex: Male

DRUGS (1)
  1. SKYCLARYS [Suspect]
     Active Substance: OMAVELOXOLONE
     Indication: Friedreich^s ataxia
     Dosage: 50 MG PO DAILY ONE WEEK ON, ONE WEEK OFF
     Route: 050
     Dates: start: 20231005

REACTIONS (3)
  - Anaesthetic complication [Unknown]
  - Ligament rupture [Not Recovered/Not Resolved]
  - Fall [Recovered/Resolved]
